FAERS Safety Report 12758194 (Version 3)
Quarter: 2016Q4

REPORT INFORMATION
  Report Type: Spontaneous
  Country: BR (occurrence: BR)
  Receive Date: 20160919
  Receipt Date: 20161028
  Transmission Date: 20170207
  Serious: Yes (Other)
  Sender: FDA-Public Use
  Company Number: BR-GE HEALTHCARE MEDICAL DIAGNOSTICS-OMPQ-PR-1609S-1676

PATIENT
  Age: 51 Year
  Sex: Male
  Weight: 85 kg

DRUGS (2)
  1. OMNIPAQUE [Suspect]
     Active Substance: IOHEXOL
     Indication: DIAGNOSTIC PROCEDURE
  2. OMNIPAQUE [Suspect]
     Active Substance: IOHEXOL
     Indication: CHEST X-RAY ABNORMAL
     Route: 042
     Dates: start: 20160809, end: 20160809

REACTIONS (4)
  - Throat tightness [Recovered/Resolved]
  - Cough [Recovered/Resolved]
  - Hypertension [Unknown]
  - Dysphonia [Recovered/Resolved]

NARRATIVE: CASE EVENT DATE: 20160809
